FAERS Safety Report 24878782 (Version 3)
Quarter: 2025Q1

REPORT INFORMATION
  Report Type: Spontaneous
  Country: NL (occurrence: NL)
  Receive Date: 20250123
  Receipt Date: 20250226
  Transmission Date: 20250409
  Serious: Yes (Hospitalization, Other)
  Sender: MYLAN
  Company Number: None

PATIENT
  Age: 26 Year
  Sex: Female
  Weight: 75 kg

DRUGS (7)
  1. BUPRENORPHINE [Suspect]
     Active Substance: BUPRENORPHINE
     Indication: Pain
     Dosage: 1 DOSAGE FORM, Q5D (1 PATCH EVERY 5 DAYS), BUPRENORPHINE 10 UG/HOUR
     Dates: start: 20190201
  2. MONTELUKAST SODIUM [Suspect]
     Active Substance: MONTELUKAST SODIUM
     Indication: Urticaria
     Dosage: 10 MILLIGRAM, QD (1X PER DAY 1 TABLET)
     Dates: start: 20190201
  3. METHADONE [Suspect]
     Active Substance: METHADONE HYDROCHLORIDE
     Indication: Pain
     Dosage: 5 MILLIGRAM, QD (1X PER DAY 1 TABLET)
     Dates: start: 20220201
  4. MORPHINE SULFATE [Suspect]
     Active Substance: MORPHINE SULFATE
     Indication: Pain
     Dosage: 2 MILLILITER, Q4H (6 X DAILY 2 ML)
     Dates: start: 20240601
  5. LEVOCETIRIZINE [Suspect]
     Active Substance: LEVOCETIRIZINE
     Indication: Urticaria
     Dosage: 5 MILLIGRAM, Q6H (1 TABLET 4 TIMES A DAY)
     Dates: start: 20180201
  6. OMALIZUMAB [Suspect]
     Active Substance: OMALIZUMAB
     Indication: Urticaria
     Dosage: 2 DOSAGE FORM, Q28D (2 INJECTIONS (150MG EACH) EVERY 4 WEEKS)
     Dates: start: 20240401
  7. OXYCODONE [Suspect]
     Active Substance: OXYCODONE
     Indication: Pain
     Dosage: 5 MILLIGRAM, Q4H (MAXIMUM 1 TABLET 6 TIMES A DAY)
     Dates: start: 20240401

REACTIONS (3)
  - Foetal vascular malperfusion [Recovered/Resolved]
  - Foetal death [Recovered/Resolved]
  - Maternal exposure during pregnancy [Recovered/Resolved]

NARRATIVE: CASE EVENT DATE: 20241119
